FAERS Safety Report 15374934 (Version 1)
Quarter: 2018Q3

REPORT INFORMATION
  Report Type: Spontaneous
  Country: US (occurrence: US)
  Receive Date: 20180912
  Receipt Date: 20180912
  Transmission Date: 20181010
  Serious: No
  Sender: FDA-Public Use
  Company Number: US-TAKEDA-2018TUS026960

PATIENT
  Age: 61 Year
  Sex: Male
  Weight: 87.08 kg

DRUGS (1)
  1. ENTYVIO [Suspect]
     Active Substance: VEDOLIZUMAB
     Indication: CROHN^S DISEASE
     Dosage: 300 MG, UNK
     Route: 042
     Dates: start: 20180722

REACTIONS (4)
  - Petechiae [Not Recovered/Not Resolved]
  - Fatigue [Recovered/Resolved]
  - Purpura [Recovered/Resolved]
  - Pruritus [Not Recovered/Not Resolved]
